FAERS Safety Report 6178630-9 (Version None)
Quarter: 2009Q2

REPORT INFORMATION
  Report Type: 
  Country: None (occurrence: None)
  Receive Date: 20090430
  Receipt Date: 20090422
  Transmission Date: 20091009
  Serious: Yes (Other)
  Sender: FDA-Public Use
  Company Number: 2009SP007273

PATIENT
  Age: 6 Year
  Sex: Male
  Weight: 29.8 kg

DRUGS (3)
  1. AERIUS (DESLORATADINE) (DESLORATADINE) [Suspect]
     Indication: ALLERGIC COUGH
     Dosage: 2.5 MG;QD;PO
     Route: 048
     Dates: start: 20090401
  2. FLUISEDAL [Concomitant]
  3. SOLUPRED [Concomitant]

REACTIONS (2)
  - DRUG INTOLERANCE [None]
  - HALLUCINATION, VISUAL [None]
